FAERS Safety Report 23403592 (Version 1)
Quarter: 2024Q1

REPORT INFORMATION
  Report Type: Spontaneous
  Country: CN (occurrence: None)
  Receive Date: 20240116
  Receipt Date: 20240116
  Transmission Date: 20240410
  Serious: Yes (Other)
  Sender: FDA-Public Use
  Company Number: CN-ROCHE-3488455

PATIENT
  Age: 60 Year
  Sex: Male

DRUGS (9)
  1. OBINUTUZUMAB [Suspect]
     Active Substance: OBINUTUZUMAB
     Indication: Diffuse large B-cell lymphoma
     Dosage: G-GEMOX, TREATMENT ON ON 13/MAY/2022, 15/JUN/2022, 28/JUL/2022, 25/AUG/2022
     Route: 042
  2. DOXORUBICIN [Concomitant]
     Active Substance: DOXORUBICIN
     Indication: Diffuse large B-cell lymphoma
     Dosage: POLA+RCHP
     Dates: start: 20231020
  3. POLATUZUMAB VEDOTIN [Concomitant]
     Active Substance: POLATUZUMAB VEDOTIN
     Indication: Diffuse large B-cell lymphoma
     Dosage: POLA+RCHP
     Dates: start: 20231020
  4. GEMCITABINE [Concomitant]
     Active Substance: GEMCITABINE
     Indication: Diffuse large B-cell lymphoma
     Dosage: G-GEMOX, TREATMENT ON ON 13/MAY/2022, 15/JUN/2022, 28/JUL/2022, 25/AUG/2022
  5. OXALIPLATIN [Concomitant]
     Active Substance: OXALIPLATIN
     Indication: Diffuse large B-cell lymphoma
     Dosage: G-GEMOX, TREATMENT ON ON 13/MAY/2022, 15/JUN/2022, 28/JUL/2022, 25/AUG/2022
  6. LENALIDOMIDE [Concomitant]
     Active Substance: LENALIDOMIDE
     Indication: Follicular lymphoma
     Dates: start: 20220331
  7. RITUXIMAB [Concomitant]
     Active Substance: RITUXIMAB
     Indication: Diffuse large B-cell lymphoma
     Dosage: POLA+RCHP, NON-ROCHE DRUGS
     Route: 065
     Dates: start: 20231020
  8. CYCLOPHOSPHAMIDE [Concomitant]
     Active Substance: CYCLOPHOSPHAMIDE
     Indication: Diffuse large B-cell lymphoma
     Dosage: POLA+RCHP
     Dates: start: 20231020
  9. PREDNISONE [Concomitant]
     Active Substance: PREDNISONE
     Indication: Diffuse large B-cell lymphoma
     Dosage: POLA+RCHP
     Dates: start: 20231020

REACTIONS (2)
  - Pneumonia [Recovering/Resolving]
  - Off label use [Unknown]
